FAERS Safety Report 13104198 (Version 1)
Quarter: 2017Q1

REPORT INFORMATION
  Report Type: Spontaneous
  Country: US (occurrence: US)
  Receive Date: 20170111
  Receipt Date: 20170111
  Transmission Date: 20170428
  Serious: Yes (Other)
  Sender: FDA-Public Use
  Company Number: US-SHIRE-US201620649

PATIENT
  Age: 69 Year
  Sex: Female
  Weight: 67.57 kg

DRUGS (1)
  1. XIIDRA [Suspect]
     Active Substance: LIFITEGRAST
     Indication: DRY EYE
     Dosage: 1 GTT(SINCE RETINA DETACHED ONLY USING IN RIGHT EYE), 2X/DAY:BID
     Route: 047
     Dates: start: 20161110

REACTIONS (5)
  - Drug dose omission [Recovered/Resolved]
  - Retinal detachment [Not Recovered/Not Resolved]
  - Product quality issue [Unknown]
  - Wrong technique in product usage process [Not Recovered/Not Resolved]
  - Incorrect dose administered [Not Recovered/Not Resolved]

NARRATIVE: CASE EVENT DATE: 201612
